FAERS Safety Report 8862839 (Version 1)
Quarter: 2012Q4

REPORT INFORMATION
  Report Type: 
  Country: US (occurrence: US)
  Receive Date: 20121026
  Receipt Date: 20121026
  Transmission Date: 20130627
  Serious: Yes (Death)
  Sender: FDA-Public Use
  Company Number: US-GLAXOSMITHKLINE-A0998409A

PATIENT
  Age: 63 Year
  Sex: Male

DRUGS (9)
  1. VOTRIENT [Suspect]
     Indication: MALIGNANT SOFT TISSUE NEOPLASM
     Dosage: 200MG See dosage text
     Route: 048
     Dates: start: 20120731
  2. CELEBREX [Concomitant]
  3. DOCUSATE SODIUM [Concomitant]
  4. FENTANYL [Concomitant]
  5. NEURONTIN [Concomitant]
  6. KEPPRA [Concomitant]
  7. LISINOPRIL [Concomitant]
  8. OMEPRAZOLE [Concomitant]
  9. PREDNISONE [Concomitant]

REACTIONS (1)
  - Death [Fatal]
